FAERS Safety Report 4541876-7 (Version None)
Quarter: 2004Q4

REPORT INFORMATION
  Report Type: 
  Country: None (occurrence: None)
  Receive Date: 20041227
  Receipt Date: 20041215
  Transmission Date: 20050328
  Serious: Yes (Hospitalization)
  Sender: FDA-Public Use
  Company Number: 2004116906

PATIENT
  Sex: Female

DRUGS (2)
  1. BEXTRA [Suspect]
     Indication: ILL-DEFINED DISORDER
  2. VALSARTAN (VALSARTAN) [Concomitant]

REACTIONS (2)
  - HYPERTENSIVE CRISIS [None]
  - TRANSIENT ISCHAEMIC ATTACK [None]
